FAERS Safety Report 10450996 (Version 1)
Quarter: 2014Q3

REPORT INFORMATION
  Report Type: Spontaneous
  Country: US (occurrence: US)
  Receive Date: 20140912
  Receipt Date: 20140912
  Transmission Date: 20150326
  Serious: Yes (Other)
  Sender: FDA-Public Use
  Company Number: US-PFIZER INC-2014252827

PATIENT
  Age: 60 Year
  Sex: Male
  Weight: 72.56 kg

DRUGS (1)
  1. CORGARD [Suspect]
     Active Substance: NADOLOL
     Indication: HYPERTENSION
     Dosage: 20 MG, 1X/DAY
     Route: 048
     Dates: start: 1994

REACTIONS (2)
  - Hypopituitarism [Not Recovered/Not Resolved]
  - Pituitary tumour [Not Recovered/Not Resolved]

NARRATIVE: CASE EVENT DATE: 2006
